FAERS Safety Report 14201791 (Version 3)
Quarter: 2018Q4

REPORT INFORMATION
  Report Type: Spontaneous
  Country: IT (occurrence: IT)
  Receive Date: 20171117
  Receipt Date: 20181002
  Transmission Date: 20190204
  Serious: Yes (Life-Threatening, Hospitalization, Other)
  Sender: FDA-Public Use
  Company Number: IT-SA-2017SA221049

PATIENT
  Age: 67 Year
  Sex: Male

DRUGS (26)
  1. HEPARIN [Concomitant]
     Active Substance: HEPARIN SODIUM
     Indication: ANTICOAGULANT THERAPY
     Dosage: UNK UNK,UNK
     Route: 065
     Dates: start: 201404
  2. CLOPIDOGREL BISULFATE. [Suspect]
     Active Substance: CLOPIDOGREL BISULFATE
     Indication: ANTICOAGULANT THERAPY
     Dosage: 75 MG,QD
     Route: 065
     Dates: start: 20141201, end: 20150401
  3. CLOPIDOGREL BISULFATE. [Suspect]
     Active Substance: CLOPIDOGREL BISULFATE
     Dosage: 75 MG,UNK
     Route: 065
     Dates: start: 201601
  4. WARFARIN SODIUM. [Suspect]
     Active Substance: WARFARIN SODIUM
     Indication: ANTICOAGULANT THERAPY
     Dosage: UNK UNK,UNK
     Route: 065
  5. WARFARIN SODIUM. [Suspect]
     Active Substance: WARFARIN SODIUM
     Dosage: UNK UNK,UNK
     Route: 065
     Dates: start: 201508
  6. WARFARIN SODIUM. [Suspect]
     Active Substance: WARFARIN SODIUM
     Dosage: UNK UNK,UNK
     Route: 065
     Dates: start: 201601
  7. WARFARIN SODIUM. [Suspect]
     Active Substance: WARFARIN SODIUM
     Dosage: UNK UNK,UNK
     Route: 065
  8. ACETYLSALICYLIC ACID [Suspect]
     Active Substance: ASPIRIN
     Dosage: 100 MG,UNK
     Route: 065
     Dates: start: 201601
  9. ACETYLSALICYLIC ACID [Suspect]
     Active Substance: ASPIRIN
     Dosage: 100 MG,UNK
     Route: 065
  10. ALTEPLASE. [Concomitant]
     Active Substance: ALTEPLASE
     Indication: ANTICOAGULANT THERAPY
     Dosage: 15 MG,UNK
     Route: 040
     Dates: start: 201601
  11. TIROFIBAN [Concomitant]
     Active Substance: TIROFIBAN
     Indication: ANTICOAGULANT THERAPY
     Dosage: .1 UG/KG,UNK
     Route: 065
     Dates: start: 201508
  12. CLOPIDOGREL BISULFATE. [Suspect]
     Active Substance: CLOPIDOGREL BISULFATE
     Dosage: 75 MG,UNK
     Route: 065
     Dates: start: 201508
  13. WARFARIN SODIUM. [Suspect]
     Active Substance: WARFARIN SODIUM
     Dosage: UNK UNK,UNK
     Route: 065
     Dates: start: 20140401
  14. DIPYRIDAMOLE. [Concomitant]
     Active Substance: DIPYRIDAMOLE
     Indication: ANTICOAGULANT THERAPY
     Dosage: 800 MG,QD
     Route: 065
  15. HEPARIN [Concomitant]
     Active Substance: HEPARIN SODIUM
     Dosage: UNK UNK,UNK
     Route: 065
     Dates: start: 201508
  16. ACETYLSALICYLIC ACID [Suspect]
     Active Substance: ASPIRIN
     Indication: ANTICOAGULANT THERAPY
     Dosage: 100 MG,QD
     Route: 065
  17. ACETYLSALICYLIC ACID [Suspect]
     Active Substance: ASPIRIN
     Dosage: 300 MG,UNK
     Route: 065
     Dates: start: 201404
  18. DIPYRIDAMOLE. [Concomitant]
     Active Substance: DIPYRIDAMOLE
     Dosage: 800 MG,QD
     Route: 065
     Dates: start: 201601
  19. HEPARIN [Concomitant]
     Active Substance: HEPARIN SODIUM
     Dosage: UNK UNK,UNK
     Route: 065
     Dates: start: 201412
  20. HEPARIN [Concomitant]
     Active Substance: HEPARIN SODIUM
     Dosage: UNK UNK,UNK
     Route: 065
  21. ALTEPLASE. [Concomitant]
     Active Substance: ALTEPLASE
     Indication: FIBRINOLYSIS
  22. WARFARIN SODIUM. [Suspect]
     Active Substance: WARFARIN SODIUM
     Dosage: UNK UNK,UNK
     Route: 065
     Dates: start: 201412
  23. ACETYLSALICYLIC ACID [Suspect]
     Active Substance: ASPIRIN
     Dosage: 100 MG,UNK
     Route: 065
     Dates: start: 201412
  24. TICAGRELOR. [Suspect]
     Active Substance: TICAGRELOR
     Indication: ANTICOAGULANT THERAPY
     Dosage: 180 MG,QD
     Route: 048
  25. ACETYLSALICYLIC ACID [Suspect]
     Active Substance: ASPIRIN
     Dosage: 100 MG,UNK
     Route: 065
     Dates: start: 201508
  26. TICAGRELOR. [Suspect]
     Active Substance: TICAGRELOR
     Indication: ARTERIAL THROMBOSIS

REACTIONS (8)
  - Headache [Unknown]
  - Therapeutic response decreased [Unknown]
  - Off label use [Unknown]
  - Haemorrhage intracranial [Unknown]
  - Embolic stroke [Unknown]
  - Cardiac ventricular thrombosis [Not Recovered/Not Resolved]
  - Product use in unapproved indication [Unknown]
  - Haematuria [Unknown]
